FAERS Safety Report 8846442 (Version 1)
Quarter: 2012Q4

REPORT INFORMATION
  Report Type: 
  Country: US (occurrence: US)
  Receive Date: 20121017
  Receipt Date: 20121017
  Transmission Date: 20130627
  Serious: No
  Sender: FDA-Public Use
  Company Number: US-BAYER-2012-104167

PATIENT
  Age: 27 Year
  Sex: Male
  Weight: 102 kg

DRUGS (5)
  1. ALEVE GELCAP [Suspect]
     Indication: TOOTHACHE
     Dosage: 5 DF, UNK
     Route: 048
     Dates: start: 20120928
  2. ALEVE GELCAP [Suspect]
     Indication: TOOTHACHE
     Dosage: 4 DF, UNK
     Route: 048
     Dates: start: 20120928
  3. ALEVE GELCAP [Suspect]
     Indication: TOOTHACHE
     Dosage: 6 DF, UNK
     Dates: start: 20120929
  4. AMOXICILLIN [Concomitant]
  5. ALBUTEROL [Concomitant]

REACTIONS (3)
  - Panic attack [Recovered/Resolved]
  - Nervousness [Recovered/Resolved]
  - No adverse event [None]
